FAERS Safety Report 16764211 (Version 3)
Quarter: 2019Q4

REPORT INFORMATION
  Report Type: Spontaneous
  Country: US (occurrence: US)
  Receive Date: 20190902
  Receipt Date: 20191129
  Transmission Date: 20200122
  Serious: Yes (Life-Threatening)
  Sender: FDA-Public Use
  Company Number: US-BRISTOL-MYERS SQUIBB COMPANY-BMS-2019-084993

PATIENT
  Age: 74 Year
  Sex: Female
  Weight: 43.77 kg

DRUGS (2)
  1. AMLODIPINE [Concomitant]
     Active Substance: AMLODIPINE BESYLATE
     Indication: PRODUCT USED FOR UNKNOWN INDICATION
     Dosage: 2.5 MILLIGRAM
     Route: 065
  2. OPDIVO [Suspect]
     Active Substance: NIVOLUMAB
     Indication: MALIGNANT MELANOMA
     Dosage: 240 AND 480 DOSES
     Route: 042
     Dates: start: 20190104, end: 20190718

REACTIONS (5)
  - Off label use [Unknown]
  - Neoplasm [Unknown]
  - Blood test abnormal [Unknown]
  - Influenza like illness [Unknown]
  - Weight decreased [Unknown]

NARRATIVE: CASE EVENT DATE: 20190118
